FAERS Safety Report 17273370 (Version 1)
Quarter: 2020Q1

REPORT INFORMATION
  Report Type: Spontaneous
  Country: GB (occurrence: GB)
  Receive Date: 20200115
  Receipt Date: 20200115
  Transmission Date: 20200409
  Serious: Yes (Other)
  Sender: FDA-Public Use
  Company Number: GB-009507513-2001GBR003357

PATIENT
  Age: 63 Year
  Sex: Female

DRUGS (1)
  1. PEMBROLIZUMAB. [Suspect]
     Active Substance: PEMBROLIZUMAB
     Indication: METASTATIC MALIGNANT MELANOMA
     Dosage: DOSE DESCRIPTION: 9 CYCLES

REACTIONS (2)
  - Immune-mediated hepatitis [Unknown]
  - Cholangitis sclerosing [Unknown]
